FAERS Safety Report 7751571-9 (Version None)
Quarter: 2011Q3

REPORT INFORMATION
  Report Type: 
  Country: None (occurrence: None)
  Receive Date: 20110914
  Receipt Date: 20110909
  Transmission Date: 20111222
  Serious: Yes (Other)
  Sender: FDA-Public Use
  Company Number: PHHY2011BR80712

PATIENT
  Age: 56 Year
  Sex: Female
  Weight: 94 kg

DRUGS (6)
  1. ASPIRIN [Concomitant]
     Indication: GASTRIC DISORDER
     Dosage: 100 MG, UNK
  2. GALVUS MET [Suspect]
     Dosage: 1 DF, BID (850/50 MG)
  3. DIOVAN [Suspect]
     Indication: HYPERTENSION
     Dosage: 160 MG, UNK
  4. GALVUS MET [Suspect]
     Dosage: 1 DF, BID (500/50 MG)
  5. INSULIN DETEMIR [Concomitant]
     Dosage: 12 IU, UNK
  6. INSULIN DETEMIR [Concomitant]
     Dosage: 20 IU, QD (BEDTIME)

REACTIONS (6)
  - ARTERIOSCLEROSIS [None]
  - CAROTID INTIMA-MEDIA THICKNESS INCREASED [None]
  - BLOOD GLUCOSE INCREASED [None]
  - GLYCOSYLATED HAEMOGLOBIN INCREASED [None]
  - DYSLIPIDAEMIA [None]
  - BLOOD CHOLESTEROL INCREASED [None]
